FAERS Safety Report 9458520 (Version 1)
Quarter: 2013Q3

REPORT INFORMATION
  Report Type: Report from Study
  Country: US (occurrence: US)
  Receive Date: 20130814
  Receipt Date: 20130814
  Transmission Date: 20140515
  Serious: Yes (Other)
  Sender: FDA-Public Use
  Company Number: US-BAXTER-2013BAX031725

PATIENT
  Sex: 0

DRUGS (6)
  1. IFEX (IFOSFAMIDE FOR INJECTION, USP) [Suspect]
     Indication: GERM CELL CANCER
     Route: 065
  2. MESNEX [Suspect]
     Indication: GERM CELL CANCER
     Route: 065
  3. PACLITAXEL [Suspect]
     Indication: GERM CELL CANCER
     Route: 065
  4. CISPLATIN [Suspect]
     Indication: GERM CELL CANCER
     Route: 065
  5. FILGRASTIM [Concomitant]
     Indication: PROPHYLAXIS
     Route: 065
  6. LEVOFLOXACIN [Concomitant]
     Indication: PROPHYLAXIS
     Route: 065

REACTIONS (1)
  - Febrile neutropenia [Unknown]
